FAERS Safety Report 10190128 (Version 1)
Quarter: 2014Q2

REPORT INFORMATION
  Report Type: Spontaneous
  Country: US (occurrence: None)
  Receive Date: 20140521
  Receipt Date: 20140521
  Transmission Date: 20141212
  Serious: Yes (Other)
  Sender: FDA-Public Use
  Company Number: None

PATIENT
  Age: 9 Year
  Sex: Male
  Weight: 34.02 kg

DRUGS (1)
  1. DEXMETHYLPHENIDATE [Suspect]
     Indication: ATTENTION DEFICIT/HYPERACTIVITY DISORDER
     Dosage: AM
     Route: 048
     Dates: start: 20140227, end: 20140306

REACTIONS (3)
  - Aggression [None]
  - Hypophagia [None]
  - Product substitution issue [None]
